FAERS Safety Report 7272367-0 (Version None)
Quarter: 2011Q1

REPORT INFORMATION
  Report Type: 
  Country: None (occurrence: None)
  Receive Date: 20110203
  Receipt Date: 20110201
  Transmission Date: 20110831
  Serious: Yes (Death, Other)
  Sender: FDA-Public Use
  Company Number: GB-B.I. PHARMACEUTICALS,INC./RIDGEFIELD-2011-UK-00073UK

PATIENT
  Age: 86 Year
  Sex: Female

DRUGS (7)
  1. BISOPROLOL [Concomitant]
  2. QUININE SULFATE [Concomitant]
  3. ASPIRIN [Concomitant]
  4. AMLODIPINE [Concomitant]
  5. OMEPRAZOLE [Concomitant]
  6. PRADAXA [Suspect]
     Indication: THROMBOSIS PROPHYLAXIS
  7. ACETAMINOPHEN [Concomitant]

REACTIONS (3)
  - DEATH [None]
  - SECRETION DISCHARGE [None]
  - WOUND SECRETION [None]
